FAERS Safety Report 11049423 (Version 1)
Quarter: 2015Q2

REPORT INFORMATION
  Report Type: Spontaneous
  Country: SE (occurrence: SE)
  Receive Date: 20150420
  Receipt Date: 20150420
  Transmission Date: 20150821
  Serious: Yes (Life-Threatening)
  Sender: FDA-Public Use
  Company Number: SE-009507513-1504SWE017600

PATIENT
  Age: 16 Year
  Sex: Female

DRUGS (2)
  1. NEORAL SANDIMMUN [Suspect]
     Active Substance: CYCLOSPORINE
     Route: 048
  2. LOSARTAN POTASSIUM. [Suspect]
     Active Substance: LOSARTAN POTASSIUM
     Route: 048

REACTIONS (1)
  - Renal failure [Recovered/Resolved]
